FAERS Safety Report 8423449-9 (Version None)
Quarter: 2012Q2

REPORT INFORMATION
  Report Type: 
  Country: None (occurrence: None)
  Receive Date: 20120608
  Receipt Date: 20120531
  Transmission Date: 20120825
  Serious: Yes (Hospitalization)
  Sender: FDA-Public Use
  Company Number: JP-VERTEX PHARMACEUTICALS INC.-AE-2012-008221

PATIENT
  Age: 64 Year
  Sex: Female

DRUGS (3)
  1. REBETOL [Concomitant]
     Route: 048
     Dates: start: 20120329, end: 20120529
  2. PEG-INTRON [Concomitant]
     Route: 051
     Dates: start: 20120329, end: 20120529
  3. TELAVIC (TELAPREVIR) [Suspect]
     Route: 048
     Dates: start: 20120329, end: 20120529

REACTIONS (1)
  - ENANTHEMA [None]
